FAERS Safety Report 12468398 (Version 1)
Quarter: 2016Q2

REPORT INFORMATION
  Report Type: Spontaneous
  Country: SE (occurrence: SE)
  Receive Date: 20160615
  Receipt Date: 20160615
  Transmission Date: 20160815
  Serious: Yes (Other)
  Sender: FDA-Public Use
  Company Number: SE-ALEXION PHARMACEUTICALS INC-A201604284

PATIENT
  Age: 43 Year
  Sex: Male

DRUGS (3)
  1. PHENOXYMETHYLPENICILLIN [Concomitant]
     Active Substance: PENICILLIN V
     Indication: INFECTION PROPHYLAXIS
     Dosage: 1 G, QD
     Route: 065
  2. SOLIRIS [Suspect]
     Active Substance: ECULIZUMAB
     Indication: TRANSPLANT REJECTION
     Dosage: 600 MG QD ON DAYS 10 AND 14
     Route: 042
  3. SOLIRIS [Suspect]
     Active Substance: ECULIZUMAB
     Indication: OFF LABEL USE

REACTIONS (2)
  - Cerebral hypoperfusion [Recovered/Resolved]
  - Off label use [Unknown]
